FAERS Safety Report 8027080-9 (Version None)
Quarter: 2012Q1

REPORT INFORMATION
  Report Type: 
  Country: None (occurrence: None)
  Receive Date: 20120106
  Receipt Date: 20111229
  Transmission Date: 20120608
  Serious: Yes (Other)
  Sender: FDA-Public Use
  Company Number: US-BAYER-2011-027865

PATIENT
  Age: 38 Year
  Sex: Female

DRUGS (6)
  1. SINGULAIR [Concomitant]
     Dosage: 10 MG, UNK
     Dates: start: 20070207
  2. PROZAC [Concomitant]
     Dosage: 20 MG, UNK
     Dates: start: 20070207
  3. MEDROL [Concomitant]
     Dosage: UNK
     Dates: start: 20070207
  4. TENUATE [Concomitant]
     Dosage: 75 MG, UNK
     Dates: start: 20070207
  5. YAZ [Suspect]
     Indication: CONTRACEPTION
     Dosage: UNK
     Route: 048
     Dates: start: 20070201, end: 20070501
  6. ALBUTEROL [Concomitant]
     Dosage: 90 UNK, UNK
     Dates: start: 20070207

REACTIONS (9)
  - CHOLELITHIASIS [None]
  - GENERAL PHYSICAL HEALTH DETERIORATION [None]
  - ANXIETY [None]
  - CHOLECYSTECTOMY [None]
  - INJURY [None]
  - EMOTIONAL DISTRESS [None]
  - PULMONARY EMBOLISM [None]
  - ANHEDONIA [None]
  - PAIN [None]
